FAERS Safety Report 14927963 (Version 15)
Quarter: 2022Q1

REPORT INFORMATION
  Report Type: Report from Study
  Country: US (occurrence: US)
  Receive Date: 20180523
  Receipt Date: 20220127
  Transmission Date: 20220423
  Serious: Yes (Other)
  Sender: FDA-Public Use
  Company Number: US-JAZZ-JPI-P-033674

PATIENT
  Sex: Female
  Weight: 63.636 kg

DRUGS (20)
  1. XYREM [Suspect]
     Active Substance: SODIUM OXYBATE
     Indication: Narcolepsy
     Dosage: 2.25 GRAM, BID
     Route: 048
     Dates: start: 20090626, end: 200907
  2. XYREM [Suspect]
     Active Substance: SODIUM OXYBATE
     Indication: Cataplexy
     Dosage: UNKNOWN DOSE
     Route: 048
     Dates: start: 200907, end: 2011
  3. XYREM [Suspect]
     Active Substance: SODIUM OXYBATE
     Indication: Somnolence
     Dosage: 4.5 GRAM, BID
     Route: 048
     Dates: start: 2011, end: 2017
  4. XYREM [Suspect]
     Active Substance: SODIUM OXYBATE
     Dosage: 4 GRAM, BID
     Route: 048
     Dates: start: 2017
  5. XANAX [Suspect]
     Active Substance: ALPRAZOLAM
     Indication: Anxiety
  6. XANAX [Suspect]
     Active Substance: ALPRAZOLAM
     Indication: Social anxiety disorder
  7. BUSPIRONE [Suspect]
     Active Substance: BUSPIRONE HYDROCHLORIDE
     Indication: Product used for unknown indication
  8. CLONAZEPAM [Suspect]
     Active Substance: CLONAZEPAM
     Indication: Product used for unknown indication
     Dosage: UNKNOWN DOSE AND FREQUENCY
  9. CANNABINOL [Concomitant]
     Active Substance: CANNABINOL
     Indication: Product used for unknown indication
  10. HONOKIOL [Concomitant]
     Indication: Product used for unknown indication
  11. MOLYBDENUM [Concomitant]
     Active Substance: MOLYBDENUM
     Indication: Product used for unknown indication
  12. VITAMIN D3 [Concomitant]
     Active Substance: CHOLECALCIFEROL
     Indication: Product used for unknown indication
  13. IODINE [Concomitant]
     Active Substance: IODINE
     Indication: Product used for unknown indication
  14. FISH OIL [Concomitant]
     Active Substance: FISH OIL
     Indication: Product used for unknown indication
  15. ULTRA FLORA PLUS [Concomitant]
     Indication: Product used for unknown indication
  16. METHYL FOLATE [FOLIC ACID;MECOBALAMIN;PYRIDOXINE HYDROCHLORIDE] [Concomitant]
     Indication: Product used for unknown indication
  17. SPARGA [Concomitant]
     Indication: Product used for unknown indication
  18. LITHIUM CITRATE [Concomitant]
     Active Substance: LITHIUM CITRATE
     Indication: Product used for unknown indication
  19. ORTHO DIGESTZYME [Concomitant]
     Indication: Product used for unknown indication
     Dosage: UNK
     Dates: start: 20140801
  20. 3,3^-DIINDOLYLMETHANE [Concomitant]
     Active Substance: 3,3^-DIINDOLYLMETHANE
     Indication: Product used for unknown indication
     Dosage: UNK
     Dates: start: 20170101

REACTIONS (18)
  - Gastrointestinal haemorrhage [Recovering/Resolving]
  - Unresponsive to stimuli [Unknown]
  - Drug dependence [Unknown]
  - Suicide attempt [Unknown]
  - Suicidal ideation [Not Recovered/Not Resolved]
  - Depression [Unknown]
  - Migraine [Unknown]
  - Photophobia [Recovering/Resolving]
  - Social anxiety disorder [Unknown]
  - Disability [Unknown]
  - Myoclonus [Unknown]
  - Hypoaesthesia [Unknown]
  - Enuresis [Unknown]
  - Anxiety [Unknown]
  - Hallucinations, mixed [Unknown]
  - Dizziness [Recovering/Resolving]
  - Panic attack [Not Recovered/Not Resolved]
  - Intentional product use issue [Unknown]

NARRATIVE: CASE EVENT DATE: 20120101
